FAERS Safety Report 9413557 (Version 1)
Quarter: 2013Q2

REPORT INFORMATION
  Report Type: Spontaneous
  Country: ES (occurrence: ES)
  Receive Date: 20130626
  Receipt Date: 20130626
  Transmission Date: 20140414
  Serious: Yes (Other)
  Sender: FDA-Public Use
  Company Number: 222016

PATIENT
  Age: 30 Year
  Sex: Female

DRUGS (3)
  1. INNOHEP (TINZAPARIN SODIUM) [Suspect]
     Indication: ANTITHROMBIN III DEFICIENCY
     Dosage: WEIGHT ADJUSTED
     Route: 058
  2. INNOHEP (TINZAPARIN SODIUM) [Suspect]
     Indication: ANTICOAGULANT THERAPY
     Dosage: WEIGHT ADJUSTED
     Route: 058
  3. ACENOCOUMAROL [Suspect]
     Indication: PRODUCT USED FOR UNKNOWN INDICATION
     Dosage: COMMENCED DURING SECOND TRIMESTER

REACTIONS (3)
  - Exposure during pregnancy [None]
  - Thrombophlebitis superficial [None]
  - Foetal growth restriction [None]
